FAERS Safety Report 7825068-1 (Version None)
Quarter: 2011Q4

REPORT INFORMATION
  Report Type: 
  Country: None (occurrence: None)
  Receive Date: 20111019
  Receipt Date: 20110915
  Transmission Date: 20120403
  Serious: No
  Sender: FDA-Public Use
  Company Number: US-BRISTOL-MYERS SQUIBB COMPANY-15781156

PATIENT
  Age: 50 Year
  Sex: Female
  Weight: 66 kg

DRUGS (2)
  1. AVALIDE [Suspect]
     Dates: end: 20110101
  2. HYDROCHLOROTHIAZIDE [Suspect]

REACTIONS (3)
  - SOMNOLENCE [None]
  - FATIGUE [None]
  - MEDICATION ERROR [None]
